FAERS Safety Report 15274332 (Version 1)
Quarter: 2018Q4

REPORT INFORMATION
  Report Type: Spontaneous
  Country: US (occurrence: US)
  Receive Date: 20180814
  Receipt Date: 20180814
  Transmission Date: 20190204
  Serious: No
  Sender: FDA-Public Use
  Company Number: US-AUROBINDO-AUR-APU-2018-032456

PATIENT
  Age: 79 Year
  Sex: Male
  Weight: 86.17 kg

DRUGS (1)
  1. RISEDRONATE SODIUM 150MG [Suspect]
     Active Substance: RISEDRONATE SODIUM
     Indication: LOWER LIMB FRACTURE
     Dosage: AT MORNING 8 AM 01 PILL
     Route: 065
     Dates: start: 20180614

REACTIONS (6)
  - Spinal pain [Not Recovered/Not Resolved]
  - Peripheral swelling [Not Recovered/Not Resolved]
  - Discomfort [Not Recovered/Not Resolved]
  - Musculoskeletal stiffness [Not Recovered/Not Resolved]
  - Arthralgia [Not Recovered/Not Resolved]
  - Gait disturbance [Not Recovered/Not Resolved]

NARRATIVE: CASE EVENT DATE: 20180614
